FAERS Safety Report 5748616-4 (Version None)
Quarter: 2008Q2

REPORT INFORMATION
  Report Type: 
  Country: None (occurrence: None)
  Receive Date: 20080512
  Receipt Date: 20080501
  Transmission Date: 20081010
  Serious: Yes (Other)
  Sender: FDA-Public Use
  Company Number: AECAN200800088

PATIENT
  Age: 62 Year
  Sex: Male
  Weight: 83.4619 kg

DRUGS (4)
  1. GAMUNEX [Suspect]
     Indication: IDIOPATHIC THROMBOCYTOPENIC PURPURA
     Dosage: 55 GM; 1X; IV
     Route: 042
     Dates: start: 20080403, end: 20080404
  2. GAMUNEX [Suspect]
  3. TETRACYCLINE [Concomitant]
  4. MOTRIN [Concomitant]

REACTIONS (1)
  - NEUTROPHIL COUNT DECREASED [None]
